FAERS Safety Report 6287010-7 (Version None)
Quarter: 2009Q3

REPORT INFORMATION
  Report Type: 
  Country: None (occurrence: None)
  Receive Date: 20090727
  Receipt Date: 20090727
  Transmission Date: 20100115
  Serious: Yes (Death)
  Sender: FDA-Public Use
  Company Number: None

PATIENT
  Sex: Male
  Weight: 79.3795 kg

DRUGS (1)
  1. GEMFIBROZIL [Suspect]
     Indication: BLOOD TRIGLYCERIDES INCREASED
     Dosage: 600 MG TWICE A DAY DIED 2-24-09 - 59 MINS AFTER TAKING MEDICATION
     Dates: start: 20090203, end: 20090224

REACTIONS (5)
  - ASTHENIA [None]
  - CORONARY ARTERY OCCLUSION [None]
  - FATIGUE [None]
  - NAUSEA [None]
  - VOMITING [None]
